FAERS Safety Report 4870733-1 (Version None)
Quarter: 2006Q1

REPORT INFORMATION
  Report Type: 
  Country: None (occurrence: None)
  Receive Date: 20060103
  Receipt Date: 20051220
  Transmission Date: 20060701
  Serious: Yes (Hospitalization)
  Sender: FDA-Public Use
  Company Number: KR-JNJFOC-20051204825

PATIENT
  Age: 54 Year
  Sex: Female

DRUGS (8)
  1. RISPERIDONE [Suspect]
     Dosage: (INCREASED TO 5 MG ON HOSPITAL DAY)
  2. RISPERIDONE [Suspect]
     Dosage: (INCREASED TO 2 MG ON HOSPITAL DAY 2)
  3. RISPERIDONE [Suspect]
     Indication: PSYCHOTIC DISORDER
  4. GLICLAZIDE [Concomitant]
     Indication: DIABETES MELLITUS
  5. AMLODIPINE [Concomitant]
     Indication: HYPERTENSION
  6. CARVEDILOL [Concomitant]
     Indication: HYPERTENSION
  7. ACETYL-L-CARNITINE [Concomitant]
     Indication: CEREBRAL INFARCTION
  8. TICLOPIDINE HCL [Concomitant]
     Indication: CEREBRAL INFARCTION

REACTIONS (1)
  - AGRANULOCYTOSIS [None]
